FAERS Safety Report 12985303 (Version 1)
Quarter: 2016Q4

REPORT INFORMATION
  Report Type: Report from Study
  Country: PT (occurrence: PT)
  Receive Date: 20161130
  Receipt Date: 20161130
  Transmission Date: 20170207
  Serious: Yes (Death, Hospitalization)
  Sender: FDA-Public Use
  Company Number: PT-ROCHE-1844970

PATIENT
  Sex: Female
  Weight: 54 kg

DRUGS (6)
  1. ZOLEDRONIC ACID [Concomitant]
     Active Substance: ZOLEDRONIC ACID
     Route: 065
  2. HERCEPTIN [Suspect]
     Active Substance: TRASTUZUMAB
     Indication: HER-2 POSITIVE BREAST CANCER
     Dosage: 1ST CYCLE LOADING DOSE CYCLE; 2ND AND 3RD CYCLE 320 MG (21/21 DAYS)
     Route: 042
     Dates: start: 20160323
  3. PERJETA [Suspect]
     Active Substance: PERTUZUMAB
     Indication: HER-2 POSITIVE BREAST CANCER
     Dosage: 1ST CYCLE LOADING DOSE 840MG, 2ND AND 3RD CYCLE 240MG (21/21 DAYS)
     Route: 042
     Dates: start: 20160323
  4. PERJETA [Suspect]
     Active Substance: PERTUZUMAB
     Route: 042
     Dates: end: 20160503
  5. PACLITAXEL. [Suspect]
     Active Substance: PACLITAXEL
     Indication: HER-2 POSITIVE BREAST CANCER
     Route: 042
     Dates: start: 20160324, end: 20160517
  6. HERCEPTIN [Suspect]
     Active Substance: TRASTUZUMAB
     Route: 042
     Dates: end: 20160503

REACTIONS (22)
  - Chills [Fatal]
  - C-reactive protein increased [Fatal]
  - Diarrhoea [Fatal]
  - Dysuria [Fatal]
  - Neutrophilia [Fatal]
  - Productive cough [Fatal]
  - Pyrexia [Fatal]
  - Respiratory failure [Fatal]
  - Blood lactate dehydrogenase increased [Fatal]
  - Dyspnoea [Fatal]
  - Hypotension [Fatal]
  - Hypoxia [Fatal]
  - Pneumocystis jirovecii pneumonia [Fatal]
  - Pneumonia [Fatal]
  - Cough [Fatal]
  - Lung infiltration [Fatal]
  - Mucosal inflammation [Fatal]
  - Sepsis [Fatal]
  - Acute lung injury [Fatal]
  - Hypocalcaemia [Fatal]
  - Leukopenia [Fatal]
  - Oxygen saturation decreased [Fatal]

NARRATIVE: CASE EVENT DATE: 20160523
